FAERS Safety Report 4413451-6 (Version None)
Quarter: 2004Q3

REPORT INFORMATION
  Report Type: 
  Country: None (occurrence: None)
  Receive Date: 20040727
  Receipt Date: 20040714
  Transmission Date: 20050211
  Serious: Yes (Hospitalization)
  Sender: FDA-Public Use
  Company Number: 207824

PATIENT
  Age: 64 Year
  Sex: Male
  Weight: 87.7 kg

DRUGS (9)
  1. BEVACIZUMAB   (BEVACIZUMAB) [Suspect]
     Indication: COLORECTAL CANCER
     Dosage: 5 MG/KG, Q2W, INTRAVENOUS
     Route: 042
     Dates: start: 20040302
  2. OXALIPLATIN [Suspect]
     Indication: COLORECTAL CANCER
     Dosage: 85 MG/M2, Q2W, INTRAVENOUS
     Route: 042
     Dates: start: 20040302
  3. FLUOROURACIL [Suspect]
     Indication: COLORECTAL CANCER
     Dosage: SEE IMAGE
     Route: 042
     Dates: start: 20040302, end: 20040629
  4. LEUCOVORIN CALCIUM [Suspect]
     Indication: COLORECTAL CANCER
     Dosage: SEE IMAGE
     Route: 042
     Dates: start: 20040302
  5. AMLODIPINE     (AMLODIPINE BESYLATE) [Concomitant]
  6. CENTRUM SILVER (MULTIVITAMINS NOS, MINERALS NOS) [Concomitant]
  7. LORAZEPAM [Concomitant]
  8. DEXAMETHASONE [Concomitant]
  9. WARFARIN SODIUM [Concomitant]

REACTIONS (4)
  - DYSPNOEA [None]
  - HEADACHE [None]
  - PULMONARY EMBOLISM [None]
  - SWELLING FACE [None]
